FAERS Safety Report 4490994-0 (Version None)
Quarter: 2004Q4

REPORT INFORMATION
  Report Type: 
  Country: None (occurrence: None)
  Receive Date: 20041027
  Receipt Date: 20041021
  Transmission Date: 20050328
  Serious: Yes (Other)
  Sender: FDA-Public Use
  Company Number: 2004240096FR

PATIENT
  Sex: Female

DRUGS (1)
  1. TRELSTAR DEPOT [Suspect]
     Indication: PRECOCIOUS PUBERTY
     Dosage: 3 MG/28 DAYS

REACTIONS (2)
  - BONE SARCOMA [None]
  - EWING'S SARCOMA [None]
